FAERS Safety Report 5877889-2 (Version None)
Quarter: 2008Q3

REPORT INFORMATION
  Report Type: 
  Country: None (occurrence: None)
  Receive Date: 20080911
  Receipt Date: 20080903
  Transmission Date: 20090109
  Serious: Yes (Other)
  Sender: FDA-Public Use
  Company Number: CN-ASTRAZENECA-2008AP06925

PATIENT
  Age: 48 Year
  Sex: Female
  Weight: 63 kg

DRUGS (3)
  1. ROPIVACAINE [Suspect]
     Indication: SURGERY
     Dosage: 9 ML
     Route: 065
  2. ATROPINE [Suspect]
     Indication: SURGERY
     Route: 030
  3. PHENOBARBITAL SODIUM 100MG CAP [Suspect]
     Indication: SURGERY
     Route: 030

REACTIONS (1)
  - HYPERSENSITIVITY [None]
